FAERS Safety Report 11603128 (Version 1)
Quarter: 2015Q4

REPORT INFORMATION
  Report Type: Spontaneous
  Country: US (occurrence: US)
  Receive Date: 20151006
  Receipt Date: 20151006
  Transmission Date: 20160304
  Serious: No
  Sender: FDA-Public Use
  Company Number: US-AMGEN-USASP2015089447

PATIENT
  Age: 78 Year
  Sex: Female
  Weight: 53.9 kg

DRUGS (1)
  1. PROLIA [Suspect]
     Active Substance: DENOSUMAB
     Indication: PRODUCT USED FOR UNKNOWN INDICATION
     Dosage: UNK, Q6MO
     Route: 058
     Dates: start: 20150527, end: 20150731

REACTIONS (4)
  - Pruritus [Not Recovered/Not Resolved]
  - Dry skin [Unknown]
  - Alopecia [Not Recovered/Not Resolved]
  - Pruritus generalised [Unknown]

NARRATIVE: CASE EVENT DATE: 201505
